FAERS Safety Report 8333727-X (Version None)
Quarter: 2012Q2

REPORT INFORMATION
  Report Type: 
  Country: None (occurrence: None)
  Receive Date: 20120503
  Receipt Date: 20120503
  Transmission Date: 20120825
  Serious: No
  Sender: FDA-Public Use
  Company Number: None

PATIENT
  Age: 57 Year
  Sex: Female
  Weight: 61.234 kg

DRUGS (1)
  1. CYMBALTA [Suspect]
     Indication: FIBROMYALGIA
     Dosage: |DOSAGETEXT: 60.0 MG||STRENGTH: 60 MG||FREQ: ONCE DAILY||ROUTE: ORAL|
     Route: 048
     Dates: start: 20090101, end: 20120501

REACTIONS (8)
  - DIZZINESS [None]
  - CONFUSIONAL STATE [None]
  - MYALGIA [None]
  - ASTHENIA [None]
  - PARAESTHESIA [None]
  - DECREASED APPETITE [None]
  - ACTIVITIES OF DAILY LIVING IMPAIRED [None]
  - NAUSEA [None]
